FAERS Safety Report 5308265-9 (Version None)
Quarter: 2007Q2

REPORT INFORMATION
  Report Type: 
  Country: None (occurrence: None)
  Receive Date: 20070426
  Receipt Date: 20070420
  Transmission Date: 20071010
  Serious: Yes (Hospitalization)
  Sender: FDA-Public Use
  Company Number: FR-RB-005801-07

PATIENT
  Age: 22 Year
  Sex: Male

DRUGS (2)
  1. SUBUTEX [Suspect]
     Indication: DRUG USE FOR UNKNOWN INDICATION
     Route: 042
  2. LEXOMIL [Concomitant]
     Dosage: DOSAGE UNKNOWN
     Route: 065

REACTIONS (3)
  - INTENTIONAL DRUG MISUSE [None]
  - INTERVERTEBRAL DISCITIS [None]
  - OSTEITIS [None]
